FAERS Safety Report 25453238 (Version 1)
Quarter: 2025Q2

REPORT INFORMATION
  Report Type: Spontaneous
  Country: GB (occurrence: GB)
  Receive Date: 20250618
  Receipt Date: 20250618
  Transmission Date: 20250717
  Serious: Yes (Disabling, Other)
  Sender: TEVA
  Company Number: GB-MHRA-TPP25305383C8965966YC1749465936388

PATIENT
  Age: 79 Year
  Sex: Female
  Weight: 74 kg

DRUGS (9)
  1. ALENDRONIC ACID [Suspect]
     Active Substance: ALENDRONIC ACID
     Indication: Ill-defined disorder
     Dosage: SHOULD NOT BE PRESCRIBED  IF EG...
     Route: 065
     Dates: start: 20230615, end: 20250603
  2. AMLODIPINE [Concomitant]
     Active Substance: AMLODIPINE BESYLATE
     Indication: Ill-defined disorder
     Dosage: TPP YC - PLEASE RECLASSIFY
     Dates: start: 20230421
  3. CALCIUM CARBONATE\CHOLECALCIFEROL [Concomitant]
     Active Substance: CALCIUM CARBONATE\CHOLECALCIFEROL
     Indication: Ill-defined disorder
     Dosage: TPP YC - PLEASE RECLASSIFY
     Dates: start: 20240419
  4. HYDROMOL [Concomitant]
     Indication: Ill-defined disorder
     Dates: start: 20230419
  5. TINZAPARIN [Concomitant]
     Active Substance: TINZAPARIN
     Indication: Ill-defined disorder
     Dosage: TPP YC - PLEASE RECLASSIFY
     Route: 058
     Dates: start: 20250528
  6. LEVOTHYROXINE [Concomitant]
     Active Substance: LEVOTHYROXINE
     Indication: Ill-defined disorder
     Dosage: TPP YC - PLEASE RECLASSIFY
     Dates: start: 19990104
  7. ZEROBASE [Concomitant]
     Indication: Ill-defined disorder
     Dates: start: 20210216
  8. EPIPEN [Concomitant]
     Active Substance: EPINEPHRINE
     Indication: Ill-defined disorder
     Dates: start: 20240418
  9. CODEINE PHOSPHATE [Concomitant]
     Active Substance: CODEINE PHOSPHATE
     Indication: Ill-defined disorder
     Dosage: TAKE 1-2, KEEP DOSE..., TPP YC - PLEASE RECLASSIFY
     Dates: start: 20250608

REACTIONS (1)
  - Femoral neck fracture [Recovering/Resolving]

NARRATIVE: CASE EVENT DATE: 20250526
